FAERS Safety Report 6168871-9 (Version None)
Quarter: 2009Q2

REPORT INFORMATION
  Report Type: 
  Country: None (occurrence: None)
  Receive Date: 20090427
  Receipt Date: 20090427
  Transmission Date: 20091009
  Serious: Yes (Other)
  Sender: FDA-Public Use
  Company Number: None

PATIENT
  Sex: Male

DRUGS (1)
  1. BREATHE RIGHT SNORE RELIEF ORAL SPRAY (BREATHE RIGHT SNORE RELIEF) [Suspect]

REACTIONS (1)
  - ANAPHYLACTIC REACTION [None]
